FAERS Safety Report 19287844 (Version 1)
Quarter: 2021Q2

REPORT INFORMATION
  Report Type: Spontaneous
  Country: TR (occurrence: TR)
  Receive Date: 20210522
  Receipt Date: 20210522
  Transmission Date: 20210717
  Serious: Yes (Other)
  Sender: FDA-Public Use
  Company Number: TR-LUPIN PHARMACEUTICALS INC.-2021-07521

PATIENT
  Age: 72 Year
  Sex: Male

DRUGS (3)
  1. MEROPENEM. [Suspect]
     Active Substance: MEROPENEM
     Indication: COVID-19 PNEUMONIA
     Dosage: 1 GRAM, BID (2X1)
     Route: 042
     Dates: start: 202103
  2. HYDROXYCHLOROQUINE [Suspect]
     Active Substance: HYDROXYCHLOROQUINE
     Indication: COVID-19 PNEUMONIA
     Dosage: 200 MILLIGRAM, BID (2X1)
     Route: 048
     Dates: start: 202103
  3. MOXIFLOXACIN HYDROCHLORIDE. [Suspect]
     Active Substance: MOXIFLOXACIN HYDROCHLORIDE
     Indication: COVID-19 PNEUMONIA
     Dosage: 400 MILLIGRAM, QD (1X1)
     Route: 042
     Dates: start: 202103

REACTIONS (1)
  - Off label use [Unknown]

NARRATIVE: CASE EVENT DATE: 202103
